FAERS Safety Report 6377066-5 (Version None)
Quarter: 2009Q3

REPORT INFORMATION
  Report Type: 
  Country: None (occurrence: None)
  Receive Date: 20090925
  Receipt Date: 20090915
  Transmission Date: 20100115
  Serious: Yes (Hospitalization, Other)
  Sender: FDA-Public Use
  Company Number: US-PFIZER INC-2009249818

PATIENT
  Sex: Male
  Weight: 74.376 kg

DRUGS (13)
  1. SUNITINIB MALATE [Suspect]
     Indication: MALIGNANT NEOPLASM OF ISLETS OF LANGERHANS
     Dosage: 12.5 MG, DAILY, EVERY DAY, TDD 12.5 MG
     Route: 048
     Dates: start: 20090714, end: 20090724
  2. COUMADIN [Concomitant]
     Dosage: UNK
  3. SCOPOLAMINE [Concomitant]
     Route: 062
  4. ZOFRAN [Concomitant]
     Dosage: UNK
  5. COMPAZINE [Concomitant]
     Dosage: UNK
  6. DESAMETHASONE [Concomitant]
     Dosage: UNK
  7. K-CHLOR [Concomitant]
     Dosage: UNK
  8. SLO-MAG [Concomitant]
     Dosage: UNK
  9. IMODIUM [Concomitant]
     Dosage: UNK
  10. LOMOTIL [Concomitant]
     Dosage: UNK
  11. CHOLESTYRAMINE [Concomitant]
     Dosage: UNK
  12. OMEPRAZOLE [Concomitant]
     Dosage: UNK
  13. OCTREOTIDE ACETATE [Concomitant]
     Dosage: UNK

REACTIONS (7)
  - BLOOD POTASSIUM DECREASED [None]
  - DIARRHOEA [None]
  - DYSPEPSIA [None]
  - HYPOMAGNESAEMIA [None]
  - NAUSEA [None]
  - PNEUMOPERITONEUM [None]
  - VOMITING [None]
